FAERS Safety Report 9313005 (Version 2)
Quarter: 2013Q3

REPORT INFORMATION
  Report Type: Spontaneous
  Country: US (occurrence: US)
  Receive Date: 20130528
  Receipt Date: 20130828
  Transmission Date: 20140515
  Serious: No
  Sender: FDA-Public Use
  Company Number: US-ABBOTT-13P-163-1089727-00

PATIENT
  Sex: Male
  Weight: 158.9 kg

DRUGS (4)
  1. ANDROGEL [Suspect]
     Indication: EMPTY SELLA SYNDROME
     Dates: start: 2012
  2. ANDROGEL [Suspect]
     Indication: PRODUCT USED FOR UNKNOWN INDICATION
     Dates: start: 2010, end: 2012
  3. UNKNOWN STEROIDS [Concomitant]
     Indication: PRODUCT USED FOR UNKNOWN INDICATION
  4. UNKNOWN ANTI INFLAMMATORY [Concomitant]
     Indication: PRODUCT USED FOR UNKNOWN INDICATION

REACTIONS (3)
  - Lymphoedema [Recovered/Resolved]
  - Swelling [Not Recovered/Not Resolved]
  - Off label use [Unknown]
